FAERS Safety Report 6645962-7 (Version None)
Quarter: 2010Q1

REPORT INFORMATION
  Report Type: 
  Country: None (occurrence: None)
  Receive Date: 20100323
  Receipt Date: 20100319
  Transmission Date: 20100710
  Serious: Yes (Death, Hospitalization)
  Sender: FDA-Public Use
  Company Number: PHHY2010BE11238

PATIENT
  Age: 80 Year
  Sex: Female

DRUGS (2)
  1. ACLASTA [Suspect]
     Indication: OSTEOPOROSIS
     Dosage: 5 MG, UNK
     Route: 042
     Dates: start: 20100126
  2. VITAMIN D [Concomitant]

REACTIONS (5)
  - DEATH [None]
  - EPILEPSY [None]
  - HYPOCALCAEMIA [None]
  - RENAL FAILURE [None]
  - VITAMIN D DECREASED [None]
